FAERS Safety Report 5113418-9 (Version None)
Quarter: 2006Q3

REPORT INFORMATION
  Report Type: 
  Country: None (occurrence: None)
  Receive Date: 20060920
  Receipt Date: 20060905
  Transmission Date: 20061208
  Serious: Yes (Other)
  Sender: FDA-Public Use
  Company Number: 2006-08-0414

PATIENT
  Age: 62 Year
  Sex: Male

DRUGS (1)
  1. CELESTONE [Suspect]
     Indication: ASTHMA
     Dosage: 2 PO
     Route: 048
     Dates: start: 19990101, end: 20050406

REACTIONS (2)
  - CRYPTOCOCCOSIS [None]
  - DIABETES MELLITUS [None]
